FAERS Safety Report 17514720 (Version 1)
Quarter: 2020Q1

REPORT INFORMATION
  Report Type: Spontaneous
  Country: US (occurrence: US)
  Receive Date: 20200227
  Receipt Date: 20200227
  Transmission Date: 20200409
  Serious: Yes (Hospitalization)
  Sender: FDA-Public Use
  Company Number: None

PATIENT
  Age: 48 Year
  Sex: Female

DRUGS (23)
  1. OPSUMIT [Concomitant]
     Active Substance: MACITENTAN
  2. CALTRATE+D [Concomitant]
  3. ADCIRCA [Concomitant]
     Active Substance: TADALAFIL
  4. OZEMPIC [Concomitant]
     Active Substance: SEMAGLUTIDE
  5. ENOXAPARIN INJ [Concomitant]
     Active Substance: ENOXAPARIN SODIUM
  6. OMEGA 3 [Concomitant]
     Active Substance: OMEGA-3 FATTY ACIDS
  7. DIGOXIN. [Concomitant]
     Active Substance: DIGOXIN
  8. SIMVASTATIN. [Concomitant]
     Active Substance: SIMVASTATIN
  9. PROBIOTIC [Concomitant]
     Active Substance: PROBIOTICS NOS
  10. CELLCEPT [Concomitant]
     Active Substance: MYCOPHENOLATE MOFETIL\MYCOPHENOLATE MOFETIL HYDROCHLORIDE
  11. BREO ELLIPTA [Concomitant]
     Active Substance: FLUTICASONE FUROATE\VILANTEROL TRIFENATATE
  12. TADALFAIL 20MG [Suspect]
     Active Substance: TADALAFIL
     Indication: PULMONARY ARTERIAL HYPERTENSION
     Route: 048
     Dates: end: 20200204
  13. PREDNISONE. [Concomitant]
     Active Substance: PREDNISONE
  14. METFORMIN [Concomitant]
     Active Substance: METFORMIN HYDROCHLORIDE
  15. VITAMIN D3 [Concomitant]
     Active Substance: CHOLECALCIFEROL
  16. VENTOLIN HFA [Concomitant]
     Active Substance: ALBUTEROL SULFATE
  17. ZYRTEC [Concomitant]
     Active Substance: CETIRIZINE HYDROCHLORIDE
  18. COLUMADIN [Concomitant]
  19. VICTOZA [Concomitant]
     Active Substance: LIRAGLUTIDE
  20. WELLBUTRIN [Concomitant]
     Active Substance: BUPROPION HYDROCHLORIDE
  21. SINGULAIR [Concomitant]
     Active Substance: MONTELUKAST SODIUM
  22. LASIX [Concomitant]
     Active Substance: FUROSEMIDE
  23. ADVAIR DISKUS [Concomitant]
     Active Substance: FLUTICASONE PROPIONATE\SALMETEROL XINAFOATE

REACTIONS (2)
  - Lung transplant [None]
  - Therapy cessation [None]

NARRATIVE: CASE EVENT DATE: 20200204
